FAERS Safety Report 8101487-3 (Version None)
Quarter: 2012Q1

REPORT INFORMATION
  Report Type: 
  Country: None (occurrence: None)
  Receive Date: 20120129
  Receipt Date: 20111010
  Transmission Date: 20120608
  Serious: No
  Sender: FDA-Public Use
  Company Number: US-ABBOTT-11P-163-0863113-00

PATIENT
  Age: 50 Year
  Sex: Female

DRUGS (17)
  1. BETHANECHOL [Concomitant]
     Indication: CROHN'S DISEASE
  2. NORTRIPTYLINE HCL [Concomitant]
     Indication: GASTROINTESTINAL DISORDER
  3. PRILOSEC [Concomitant]
     Indication: GASTROOESOPHAGEAL REFLUX DISEASE
  4. MORPHINE [Concomitant]
     Dosage: AS NEEDED
  5. IMURAN [Concomitant]
     Indication: CROHN'S DISEASE
  6. ZOLOFT [Concomitant]
     Indication: DEPRESSION
  7. ZINC SULFATE [Concomitant]
     Indication: PRODUCT USED FOR UNKNOWN INDICATION
  8. OSEOBIFLEX [Concomitant]
     Indication: SUPPLEMENTATION THERAPY
  9. ASPIRIN [Concomitant]
     Indication: PRODUCT USED FOR UNKNOWN INDICATION
  10. MORPHINE [Concomitant]
     Indication: PAIN
  11. FIORINAL [Concomitant]
     Indication: MIGRAINE
     Dosage: 2 TABS AS NEEDED
  12. PHENERGAN [Concomitant]
     Indication: NAUSEA
  13. XANAX [Concomitant]
     Indication: ANXIETY
  14. ZANAFLEX [Concomitant]
     Indication: MUSCLE SPASMS
     Dosage: AS NEEDED
  15. PREDNISONE TAB [Concomitant]
     Indication: CROHN'S DISEASE
  16. MAGNESIUM [Concomitant]
     Indication: PRODUCT USED FOR UNKNOWN INDICATION
  17. HUMIRA [Suspect]
     Indication: CROHN'S DISEASE
     Dates: start: 20110923

REACTIONS (2)
  - URINE OUTPUT DECREASED [None]
  - NAUSEA [None]
